FAERS Safety Report 5460702-5 (Version None)
Quarter: 2007Q3

REPORT INFORMATION
  Report Type: 
  Country: None (occurrence: None)
  Receive Date: 20070918
  Receipt Date: 20070907
  Transmission Date: 20080115
  Serious: Yes (Other)
  Sender: FDA-Public Use
  Company Number: 2007-02395

PATIENT
  Age: 64 Year
  Sex: Male
  Weight: 71 kg

DRUGS (19)
  1. VELCADE [Suspect]
     Indication: MULTIPLE MYELOMA
     Dosage: 2.20 MG, INTRAVENOUS
     Route: 042
     Dates: start: 20070611, end: 20070705
  2. DEXAMETHASONE [Suspect]
     Indication: MULTIPLE MYELOMA
     Dosage: 20.00 MG, ORAL
     Route: 048
     Dates: start: 20070611, end: 20070706
  3. ALLOPURINOL [Concomitant]
  4. FAMOTIDINE [Concomitant]
  5. BAKTAR (SULFAMETHOXAZOLE, TRIMETHOPRIM) [Concomitant]
  6. ZOLPIDEM TARTRATE [Concomitant]
  7. PRIMPERAN TAB [Concomitant]
  8. MUCOSTA (REBAMIPIDE) [Concomitant]
  9. PANTOSIN (PANTETHINE) [Concomitant]
  10. MAGNESIUM OXIDE (MAGNESIUM OXIDE) [Concomitant]
  11. PURSENNID (SENNA LEAF) [Concomitant]
  12. INSULIN HUMAN (INSULIN HUMAN) [Concomitant]
  13. KINEDAK (EPALRESTAT) [Concomitant]
  14. ASPIRIN [Concomitant]
  15. LASIX [Concomitant]
  16. ALDACTONE [Concomitant]
  17. ENALAPRIL MALEATE [Concomitant]
  18. MEDET (METFORMIN HYDROCHLORIDE) [Concomitant]
  19. AMLODIPINE BESYLATE [Concomitant]

REACTIONS (6)
  - CONSTIPATION [None]
  - HERPES ZOSTER [None]
  - HICCUPS [None]
  - INSOMNIA [None]
  - LOSS OF CONSCIOUSNESS [None]
  - PLATELET COUNT DECREASED [None]
